FAERS Safety Report 24042826 (Version 1)
Quarter: 2024Q3

REPORT INFORMATION
  Report Type: Report from Study
  Country: US (occurrence: US)
  Receive Date: 20240702
  Receipt Date: 20240702
  Transmission Date: 20241016
  Serious: Yes (Death, Hospitalization)
  Sender: ABBVIE
  Company Number: US-ABBVIE-5821853

PATIENT
  Sex: Male

DRUGS (1)
  1. RINVOQ [Suspect]
     Active Substance: UPADACITINIB
     Indication: Rheumatoid arthritis
     Route: 048
     Dates: end: 20240604

REACTIONS (3)
  - Leukaemia [Fatal]
  - Pneumonia [Fatal]
  - Lymphoma [Fatal]
